FAERS Safety Report 11387512 (Version 2)
Quarter: 2015Q3

REPORT INFORMATION
  Report Type: Other
  Country: JP (occurrence: JP)
  Receive Date: 20150817
  Receipt Date: 20150910
  Transmission Date: 20151125
  Serious: Yes (Other)
  Sender: FDA-Public Use
  Company Number: JP-GUERBET LLC-1041131

PATIENT
  Age: 9 Year
  Sex: Male

DRUGS (3)
  1. PLATINUM MICRO-COILS [Concomitant]
     Route: 042
  2. LIPIODOL [Suspect]
     Active Substance: ETHIODIZED OIL
     Route: 040
  3. NBCA (N-BUTYL-2-CYANOACRYLATE) [Concomitant]
     Active Substance: ENBUCRILATE
     Route: 040

REACTIONS (2)
  - Splenic infarction [Unknown]
  - Abdominal pain upper [Recovering/Resolving]
